FAERS Safety Report 10094374 (Version 1)
Quarter: 2014Q2

REPORT INFORMATION
  Report Type: Spontaneous
  Country: US (occurrence: US)
  Receive Date: 20140422
  Receipt Date: 20140422
  Transmission Date: 20141212
  Serious: No
  Sender: FDA-Public Use
  Company Number: US-009507513-1404USA011450

PATIENT
  Sex: 0

DRUGS (2)
  1. JANUMET [Suspect]
     Dosage: 1 DF, BID
     Route: 048
  2. GLIPIZIDE [Concomitant]
     Dosage: 10 MG, BID

REACTIONS (2)
  - Blood glucose increased [Unknown]
  - Glycosylated haemoglobin increased [Unknown]
